FAERS Safety Report 25749223 (Version 3)
Quarter: 2025Q4

REPORT INFORMATION
  Report Type: Report from Study
  Country: JP (occurrence: JP)
  Receive Date: 20250902
  Receipt Date: 20251221
  Transmission Date: 20260117
  Serious: Yes (Death, Hospitalization)
  Sender: TAIHO ONCOLOGY INC
  Company Number: JP-TAIHOP-2024-001039

PATIENT
  Age: 79 Year
  Sex: Male
  Weight: 48 kg

DRUGS (13)
  1. LYTGOBI [Suspect]
     Active Substance: FUTIBATINIB
     Indication: Bile duct cancer
     Route: 048
     Dates: start: 20240120, end: 20240202
  2. LYTGOBI [Suspect]
     Active Substance: FUTIBATINIB
     Route: 048
     Dates: start: 20240209, end: 20240215
  3. LYTGOBI [Suspect]
     Active Substance: FUTIBATINIB
     Route: 048
     Dates: start: 20240216, end: 20240229
  4. LYTGOBI [Suspect]
     Active Substance: FUTIBATINIB
     Route: 048
     Dates: start: 20240315, end: 20240513
  5. LYTGOBI [Suspect]
     Active Substance: FUTIBATINIB
     Route: 048
     Dates: start: 20240615, end: 20240621
  6. LYTGOBI [Suspect]
     Active Substance: FUTIBATINIB
     Route: 048
     Dates: start: 20240622, end: 20240628
  7. LYTGOBI [Suspect]
     Active Substance: FUTIBATINIB
     Route: 048
     Dates: start: 20240706, end: 20240815
  8. LYTGOBI [Suspect]
     Active Substance: FUTIBATINIB
     Route: 048
     Dates: start: 20240830, end: 20241107
  9. LYTGOBI [Suspect]
     Active Substance: FUTIBATINIB
     Route: 048
     Dates: start: 20241123, end: 20241219
  10. LYTGOBI [Suspect]
     Active Substance: FUTIBATINIB
     Route: 048
     Dates: start: 20250104, end: 20250211
  11. LYTGOBI [Suspect]
     Active Substance: FUTIBATINIB
     Route: 048
     Dates: start: 20250222, end: 20250420
  12. LYTGOBI [Suspect]
     Active Substance: FUTIBATINIB
     Route: 048
     Dates: start: 20250425, end: 20250531
  13. LANTHANUM CARBONATE [Suspect]
     Active Substance: LANTHANUM CARBONATE
     Indication: Hyperphosphataemia
     Dosage: POWDER, START DATE : 26/JAN/2024

REACTIONS (15)
  - Cerebral infarction [Fatal]
  - Mycobacterium avium complex infection [Recovered/Resolved with Sequelae]
  - Hyperphosphataemia [Recovering/Resolving]
  - Enterocolitis [Unknown]
  - Hepatic function abnormal [Recovered/Resolved]
  - Nasopharyngitis [Unknown]
  - Constipation [Recovering/Resolving]
  - Cough [Unknown]
  - Prescribed underdose [Unknown]
  - Onycholysis [Recovering/Resolving]
  - Palmar-plantar erythrodysaesthesia syndrome [Recovering/Resolving]
  - Nail avulsion [Recovered/Resolved with Sequelae]
  - Onychomadesis [Recovered/Resolved with Sequelae]
  - Vomiting [Recovering/Resolving]
  - Visual field defect [Recovering/Resolving]

NARRATIVE: CASE EVENT DATE: 20240123
